FAERS Safety Report 19146673 (Version 1)
Quarter: 2021Q2

REPORT INFORMATION
  Report Type: Spontaneous
  Country: DE (occurrence: DE)
  Receive Date: 20210416
  Receipt Date: 20210416
  Transmission Date: 20210717
  Serious: Yes (Death, Hospitalization, Other)
  Sender: FDA-Public Use
  Company Number: GXKR2008DE03766

PATIENT
  Age: 74 Year
  Sex: Male

DRUGS (1)
  1. HEPARIN [Suspect]
     Active Substance: HEPARIN SODIUM
     Indication: ANTICOAGULANT THERAPY
     Dosage: UNK
     Route: 065

REACTIONS (6)
  - Heparin-induced thrombocytopenia test [Fatal]
  - Sepsis [Unknown]
  - Heparin-induced thrombocytopenia [Fatal]
  - Multiple organ dysfunction syndrome [Fatal]
  - Platelet count decreased [Fatal]
  - Anti-platelet antibody positive [Fatal]
